FAERS Safety Report 7794072-4 (Version None)
Quarter: 2011Q4

REPORT INFORMATION
  Report Type: 
  Country: None (occurrence: None)
  Receive Date: 20111004
  Receipt Date: 20110926
  Transmission Date: 20120403
  Serious: Yes (Other)
  Sender: FDA-Public Use
  Company Number: JP-JNJFOC-20110907347

PATIENT
  Age: 63 Year
  Sex: Female

DRUGS (9)
  1. ZOLPIDEM [Concomitant]
     Route: 048
  2. TRAMADOL HYDROCHLORIDE AND ACETAMINOPHEN [Suspect]
     Dosage: ONCE A DAY
     Route: 048
     Dates: start: 20110818, end: 20110921
  3. TRAMADOL HYDROCHLORIDE AND ACETAMINOPHEN [Suspect]
     Indication: PAIN
     Dosage: ONCE A DAY
     Route: 048
     Dates: start: 20110804, end: 20110817
  4. LOXONIN [Concomitant]
     Route: 048
  5. PURSENNID [Concomitant]
     Route: 048
  6. METHYCOBAL [Concomitant]
     Route: 065
  7. IRSOGLADINE MALEATE [Concomitant]
     Route: 048
  8. MOTILIUM [Concomitant]
     Route: 065
  9. LANSOPRAZOLE [Concomitant]
     Route: 065

REACTIONS (2)
  - POLLAKIURIA [None]
  - DYSURIA [None]
